FAERS Safety Report 7200102-0 (Version None)
Quarter: 2010Q4

REPORT INFORMATION
  Report Type: 
  Country: None (occurrence: None)
  Receive Date: 20101228
  Receipt Date: 20101221
  Transmission Date: 20110411
  Serious: Yes (Other)
  Sender: FDA-Public Use
  Company Number: CA-JNJFOC-20101208233

PATIENT
  Sex: Male
  Weight: 100 kg

DRUGS (3)
  1. REMICADE [Suspect]
     Indication: CROHN'S DISEASE
     Route: 042
  2. BENADRYL [Concomitant]
     Indication: PREMEDICATION
     Dosage: 25 MG PRIOR TO INFLIXIMAB
     Route: 048
  3. SOLU-CORTEF [Concomitant]
     Indication: PREMEDICATION
     Dosage: 100 MG PRIOR TO INFLIXIMAB
     Route: 042

REACTIONS (1)
  - PROSTATE CANCER [None]
